FAERS Safety Report 17425475 (Version 2)
Quarter: 2020Q1

REPORT INFORMATION
  Report Type: Spontaneous
  Country: US (occurrence: US)
  Receive Date: 20200217
  Receipt Date: 20200327
  Transmission Date: 20200409
  Serious: No
  Sender: FDA-Public Use
  Company Number: US-GLAXOSMITHKLINE-US2020022428

PATIENT
  Sex: Female

DRUGS (1)
  1. BREO ELLIPTA [Suspect]
     Active Substance: FLUTICASONE FUROATE\VILANTEROL TRIFENATATE
     Indication: ASTHMA
     Dosage: 1 PUFF(S)
     Route: 065
     Dates: start: 2018

REACTIONS (4)
  - Drug ineffective [Unknown]
  - Intentional product misuse [Unknown]
  - Intentional underdose [Unknown]
  - Product complaint [Unknown]
